FAERS Safety Report 21022637 (Version 1)
Quarter: 2022Q2

REPORT INFORMATION
  Report Type: Spontaneous
  Country: JP (occurrence: JP)
  Receive Date: 20220629
  Receipt Date: 20220629
  Transmission Date: 20220720
  Serious: Yes (Other)
  Sender: FDA-Public Use
  Company Number: JP-PFIZER INC-202200744639

PATIENT
  Age: 5 Decade
  Sex: Male

DRUGS (1)
  1. XELJANZ [Suspect]
     Active Substance: TOFACITINIB CITRATE
     Indication: Arthritis enteropathic
     Dosage: 20 MG, DAILY
     Route: 048
     Dates: start: 2019, end: 202204

REACTIONS (3)
  - Herpes zoster disseminated [Recovered/Resolved with Sequelae]
  - Post herpetic neuralgia [Not Recovered/Not Resolved]
  - Off label use [Unknown]

NARRATIVE: CASE EVENT DATE: 20190101
